FAERS Safety Report 19506366 (Version 1)
Quarter: 2021Q3

REPORT INFORMATION
  Report Type: Spontaneous
  Country: US (occurrence: US)
  Receive Date: 20210708
  Receipt Date: 20210708
  Transmission Date: 20211014
  Serious: No
  Sender: FDA-Public Use
  Company Number: None

PATIENT
  Age: 77 Year
  Sex: Male

DRUGS (1)
  1. INSULIN (INSULIN, ASPART HUMAN 100 UNT/ML INJ) [Suspect]
     Active Substance: INSULIN ASPART
     Dates: start: 20210522

REACTIONS (3)
  - Extra dose administered [None]
  - Hypoglycaemia [None]
  - Respiratory depression [None]

NARRATIVE: CASE EVENT DATE: 20210522
